FAERS Safety Report 8604321-8 (Version None)
Quarter: 2012Q3

REPORT INFORMATION
  Report Type: 
  Country: None (occurrence: None)
  Receive Date: 20120808
  Receipt Date: 20120808
  Transmission Date: 20120928
  Serious: Yes (Disabling, Other)
  Sender: FDA-Public Use
  Company Number: None

PATIENT
  Age: 57 Year
  Sex: Female
  Weight: 57.7 kg

DRUGS (1)
  1. CIPROFLOXACIN [Suspect]
     Indication: URINARY TRACT INFECTION
     Dosage: 500 MG TWICE DAILY ORAL 047
     Route: 048
     Dates: start: 20120116, end: 20120120

REACTIONS (13)
  - FATIGUE [None]
  - IMPAIRED WORK ABILITY [None]
  - MUSCULOSKELETAL STIFFNESS [None]
  - ACTIVITIES OF DAILY LIVING IMPAIRED [None]
  - AGITATION [None]
  - TENDONITIS [None]
  - PHOTOPHOBIA [None]
  - MYALGIA [None]
  - COGNITIVE DISORDER [None]
  - HEADACHE [None]
  - EYE PAIN [None]
  - NEUROPATHY PERIPHERAL [None]
  - INSOMNIA [None]
